FAERS Safety Report 6968170-9 (Version None)
Quarter: 2010Q3

REPORT INFORMATION
  Report Type: 
  Country: None (occurrence: None)
  Receive Date: 20100907
  Receipt Date: 20100831
  Transmission Date: 20110219
  Serious: Yes (Life-Threatening, Hospitalization)
  Sender: FDA-Public Use
  Company Number: JP-ELI_LILLY_AND_COMPANY-JP201007005467

PATIENT
  Age: 82 Year
  Sex: Female
  Weight: 52.3 kg

DRUGS (9)
  1. TADALAFIL [Suspect]
     Indication: PULMONARY ARTERIAL HYPERTENSION
     Dosage: 20 MG, DAILY (1/D)
     Route: 048
     Dates: start: 20100627, end: 20100628
  2. TADALAFIL [Suspect]
     Dosage: 40 MG, DAILY (1/D)
     Route: 048
     Dates: start: 20100629, end: 20100721
  3. TRACLEER [Concomitant]
     Indication: PULMONARY HYPERTENSION
     Dosage: 250 MG, DAILY (1/D)
     Route: 048
     Dates: start: 20100331
  4. ACTONEL [Concomitant]
     Dosage: 2.5 MG, DAILY (1/D)
     Route: 048
     Dates: end: 20100722
  5. WARFARIN SODIUM [Concomitant]
     Indication: PULMONARY HYPERTENSION
     Dosage: 1.5 MG, DAILY (1/D)
     Route: 048
     Dates: start: 20100407, end: 20100808
  6. THYRADIN S [Concomitant]
     Dosage: 50 UG, DAILY (1/D)
     Route: 048
  7. MUCOSTA [Concomitant]
     Dosage: 300 MG, UNKNOWN
     Route: 065
  8. MAGNESIUM OXIDE [Concomitant]
     Dosage: 1 G, UNKNOWN
     Route: 065
  9. TAKEPRON [Concomitant]
     Indication: PROPHYLAXIS
     Dosage: 15 MG, UNKNOWN
     Route: 065
     Dates: start: 20100407

REACTIONS (1)
  - PULMONARY OEDEMA [None]
